FAERS Safety Report 8850797 (Version 3)
Quarter: 2013Q1

REPORT INFORMATION
  Report Type: Spontaneous
  Country: US (occurrence: US)
  Receive Date: 20121019
  Receipt Date: 20130103
  Transmission Date: 20140127
  Serious: Yes (Hospitalization)
  Sender: FDA-Public Use
  Company Number: None

PATIENT
  Age: 78 Year
  Sex: Male

DRUGS (8)
  1. KENALOG-40 INJ [Suspect]
     Indication: INFLAMMATION
     Dosage: ROUTE OF ADMIN: RIGHT FOOT
     Dates: start: 20120906
  2. KENALOG-40 INJ [Suspect]
     Indication: PAIN
     Dosage: ROUTE OF ADMIN: RIGHT FOOT
     Dates: start: 20120906
  3. LIDOCAINE [Suspect]
     Indication: INFLAMMATION
     Dates: start: 20120906
  4. LIDOCAINE [Suspect]
     Indication: PAIN
     Dates: start: 20120906
  5. MARCAINE [Suspect]
     Indication: INFLAMMATION
     Dosage: ROUTE OF ADMIN: RIGHT FOOT
     Dates: start: 20120906
  6. MARCAINE [Suspect]
     Indication: PAIN
     Dosage: ROUTE OF ADMIN: RIGHT FOOT
     Dates: start: 20120906
  7. DEXAMETHASONE [Suspect]
     Indication: PAIN
     Dosage: ROUTE OF ADMIN: RIGHT FOOT
     Dates: start: 20120906
  8. DEXAMETHASONE [Suspect]
     Indication: INFLAMMATION
     Dosage: ROUTE OF ADMIN: RIGHT FOOT
     Dates: start: 20120906

REACTIONS (2)
  - Malaise [Unknown]
  - Pneumonia [None]
